FAERS Safety Report 17620778 (Version 1)
Quarter: 2020Q2

REPORT INFORMATION
  Report Type: Spontaneous
  Country: US (occurrence: US)
  Receive Date: 20200403
  Receipt Date: 20200403
  Transmission Date: 20200713
  Serious: No
  Sender: FDA-Public Use
  Company Number: US-BAUSCH-BL-2020-006954

PATIENT
  Age: 76 Year
  Sex: Female
  Weight: 77.18 kg

DRUGS (1)
  1. LUMIFY [Suspect]
     Active Substance: BRIMONIDINE TARTRATE
     Indication: OCULAR HYPERAEMIA
     Dosage: USED ONCE HALF OF THE VIAL (0.013 FL OZ, 0.4 ML) IN ONE EYE AND OTHER HALF OF VIAL IN OTHER EYE
     Route: 047
     Dates: start: 202002, end: 202002

REACTIONS (2)
  - Wrong technique in product usage process [Unknown]
  - Lacrimation increased [Recovered/Resolved]

NARRATIVE: CASE EVENT DATE: 202002
